FAERS Safety Report 8220769-8 (Version None)
Quarter: 2012Q1

REPORT INFORMATION
  Report Type: 
  Country: None (occurrence: None)
  Receive Date: 20120320
  Receipt Date: 20120312
  Transmission Date: 20120608
  Serious: Yes (Death, Hospitalization)
  Sender: FDA-Public Use
  Company Number: US-CELGENEUS-028-21660-12030420

PATIENT
  Sex: Female
  Weight: 74 kg

DRUGS (14)
  1. ABRAXANE [Suspect]
     Dosage: 400 MILLIGRAM
     Route: 041
     Dates: start: 20120222, end: 20120222
  2. MOI-STIR [Concomitant]
     Route: 065
  3. GRAVOL TAB [Concomitant]
     Route: 065
  4. LACTULOSE [Concomitant]
     Route: 065
  5. SENOKOT [Concomitant]
     Route: 065
  6. ATARAX [Concomitant]
     Route: 065
  7. ZOMETA [Concomitant]
     Indication: BONE DISORDER
     Dosage: 4 MILLIGRAM
     Route: 041
     Dates: start: 20111101, end: 20120201
  8. FRAGMIN [Concomitant]
     Route: 065
  9. NYSTATIN [Concomitant]
     Route: 065
  10. POLYETHYLENE GLYCOL [Concomitant]
     Route: 065
  11. GLYCERIN [Concomitant]
     Route: 065
  12. HYDROMORPHONE HCL [Concomitant]
     Route: 065
  13. ATIVAN [Concomitant]
     Route: 065
  14. NEUPOGEN [Concomitant]
     Route: 065
     Dates: start: 20120227, end: 20120229

REACTIONS (3)
  - STEVENS-JOHNSON SYNDROME [None]
  - NEUTROPENIA [None]
  - SEPSIS [None]
